FAERS Safety Report 5347897-9 (Version None)
Quarter: 2007Q2

REPORT INFORMATION
  Report Type: 
  Country: None (occurrence: None)
  Receive Date: 20070606
  Receipt Date: 20070524
  Transmission Date: 20071010
  Serious: Yes (Hospitalization, Other)
  Sender: FDA-Public Use
  Company Number: PHEH2007US05534

PATIENT
  Age: 54 Year
  Sex: Female
  Weight: 65.759 kg

DRUGS (9)
  1. ZELNORM [Suspect]
     Indication: IRRITABLE BOWEL SYNDROME
     Dosage: UNK, UNK
     Route: 048
     Dates: start: 20050627, end: 20070412
  2. PLAVIX [Concomitant]
     Indication: CORONARY ARTERY DISEASE
     Dosage: 75 MG, QD
     Route: 048
     Dates: start: 20050201
  3. ASPIRIN [Concomitant]
     Indication: CORONARY ARTERY DISEASE
     Dosage: 81-160MG QD
     Route: 048
     Dates: start: 20050201
  4. VICODIN ES [Concomitant]
     Indication: BACK PAIN
     Dosage: UNK, QID
     Route: 048
     Dates: start: 19900101
  5. XANAX [Concomitant]
     Indication: ANXIETY
     Dosage: UNK, QID
     Route: 048
     Dates: start: 19890401
  6. TRAZODONE HCL [Concomitant]
     Indication: INSOMNIA
     Dosage: 150 MG, QHS
     Route: 048
     Dates: start: 19880501
  7. VYTORIN [Concomitant]
     Indication: CORONARY ARTERY DISEASE
     Dosage: 10/40 QHS
     Dates: start: 20050201
  8. SINGULAIR [Concomitant]
     Indication: CHRONIC OBSTRUCTIVE PULMONARY DISEASE
     Dosage: 10 MG, QD
     Dates: start: 20041001
  9. SPIRIVA [Concomitant]
     Indication: CHRONIC OBSTRUCTIVE PULMONARY DISEASE
     Dosage: UNK, QD
     Dates: start: 20041001

REACTIONS (3)
  - ABDOMINAL DISTENSION [None]
  - ANGINA PECTORIS [None]
  - CHEST PAIN [None]
